FAERS Safety Report 23346098 (Version 1)
Quarter: 2023Q4

REPORT INFORMATION
  Report Type: Spontaneous
  Country: US (occurrence: None)
  Receive Date: 20231227
  Receipt Date: 20231227
  Transmission Date: 20240110
  Serious: Yes (Hospitalization)
  Sender: FDA-Public Use
  Company Number: None

PATIENT
  Age: 36 Year
  Sex: Male

DRUGS (6)
  1. ENVARSUS XR [Suspect]
     Active Substance: TACROLIMUS
     Indication: Renal transplant
     Dosage: FREQUENCY : DAILY;?
     Route: 048
     Dates: start: 20220428
  2. ENVARUS XR [Concomitant]
  3. SODIUM BICARBONATE [Concomitant]
  4. FUROSEMIDE 20MG [Concomitant]
  5. LOKELMA 10GRAMS [Concomitant]
  6. LOSARTAN [Concomitant]
     Active Substance: LOSARTAN

REACTIONS (1)
  - Infection [None]

NARRATIVE: CASE EVENT DATE: 20231224
